FAERS Safety Report 10162748 (Version 1)
Quarter: 2014Q2

REPORT INFORMATION
  Report Type: Spontaneous
  Country: BR (occurrence: BR)
  Receive Date: 20140509
  Receipt Date: 20140509
  Transmission Date: 20141212
  Serious: Yes (Other)
  Sender: FDA-Public Use
  Company Number: BR-PFIZER INC-2014126484

PATIENT
  Age: 40 Year
  Sex: Female
  Weight: 93 kg

DRUGS (7)
  1. PRISTIQ [Suspect]
     Dosage: UNK
     Route: 048
     Dates: start: 2012
  2. LAMOTRIGINE [Concomitant]
     Indication: HYPOMANIA
     Dosage: 1 UNIT (UNSPECIFIED IF TABLET OR CAPSULE, UNSPECIFIED DOSE), DAILY
     Dates: start: 2013
  3. LAMOTRIGINE [Concomitant]
     Indication: BIPOLAR DISORDER
  4. QUETIAPINE [Concomitant]
     Dosage: 1 UNIT (UNSPECIFIED IF TABLET OR CAPSULE, UNSPECIFIED DOSE), DAILY
     Dates: start: 201312
  5. RIVOTRIL [Concomitant]
     Indication: INSOMNIA
     Dosage: 2 UNITS (UNSPECIFIED IF TABLET OR CAPSULE, UNSPECIFIED DOSE), DAILY, DAILY
     Dates: start: 201312
  6. RIVOTRIL [Concomitant]
     Indication: HYPOMANIA
  7. RIVOTRIL [Concomitant]
     Indication: BIPOLAR DISORDER

REACTIONS (2)
  - Open fracture [Unknown]
  - Fall [Unknown]
